FAERS Safety Report 19017332 (Version 1)
Quarter: 2021Q1

REPORT INFORMATION
  Report Type: Spontaneous
  Country: PE (occurrence: PE)
  Receive Date: 20210317
  Receipt Date: 20210317
  Transmission Date: 20210420
  Serious: Yes (Other)
  Sender: FDA-Public Use
  Company Number: PE-ACS-001954

PATIENT
  Age: 4 Year
  Sex: Female

DRUGS (5)
  1. METRONIDAZOLE. [Concomitant]
     Active Substance: METRONIDAZOLE
     Indication: STRONGYLOIDIASIS
     Dosage: EVERY 8 HOURS
     Route: 065
  2. IVERMECTIN. [Concomitant]
     Active Substance: IVERMECTIN
     Indication: STRONGYLOIDIASIS
     Dosage: 1 DROP/KG/DAY
     Route: 065
  3. METAMIZOLE [Concomitant]
     Active Substance: METAMIZOLE
     Indication: ABDOMINAL PAIN
     Route: 065
  4. CEFTRIAXONE. [Suspect]
     Active Substance: CEFTRIAXONE
     Indication: STRONGYLOIDIASIS
     Dosage: THERAPY CHANGED TO CEFTRIAXONE AT 80 MG / KG / DAY EVERY 12 HOURS
     Route: 065
  5. OMEPRAZOLE. [Concomitant]
     Active Substance: OMEPRAZOLE
     Indication: STRONGYLOIDIASIS
     Dosage: EVERY 12 HOURS
     Route: 065

REACTIONS (2)
  - Vasculitis [Recovering/Resolving]
  - Off label use [Unknown]
